FAERS Safety Report 13085168 (Version 1)
Quarter: 2017Q1

REPORT INFORMATION
  Report Type: Spontaneous
  Country: CO (occurrence: CO)
  Receive Date: 20170104
  Receipt Date: 20170104
  Transmission Date: 20170428
  Serious: Yes (Other)
  Sender: FDA-Public Use
  Company Number: CO-CELLTRION INC.-2016CO014296

PATIENT

DRUGS (6)
  1. CARBONATO DE CALCIO [Concomitant]
     Dosage: 600+200 MG/UI, UNK
     Route: 048
  2. SULFASALAZINE. [Concomitant]
     Active Substance: SULFASALAZINE
     Indication: RHEUMATOID ARTHRITIS
     Dosage: 500 MG, 8 HOURS, UNK
     Route: 048
  3. REMSIMA [Suspect]
     Active Substance: INFLIXIMAB
     Indication: RHEUMATOID ARTHRITIS
     Dosage: 200 MG EVERY 6 WEEKS, UNK
     Route: 042
     Dates: start: 201605, end: 201605
  4. PREDNISOLONA                       /00016201/ [Concomitant]
     Indication: RHEUMATOID ARTHRITIS
     Dosage: 5 MG, DAILY
     Route: 048
  5. LEFLUNOMIDE. [Concomitant]
     Active Substance: LEFLUNOMIDE
     Indication: RHEUMATOID ARTHRITIS
     Dosage: 20 MG, DAILY
     Route: 048
  6. REMSIMA [Suspect]
     Active Substance: INFLIXIMAB
     Dosage: 200 MG EVERY 6 WEEKS, UNK
     Dates: start: 20161011, end: 20161011

REACTIONS (1)
  - Treatment failure [Unknown]

NARRATIVE: CASE EVENT DATE: 20161111
